FAERS Safety Report 22532551 (Version 2)
Quarter: 2023Q2

REPORT INFORMATION
  Report Type: Report from Study
  Country: US (occurrence: US)
  Receive Date: 20230607
  Receipt Date: 20230628
  Transmission Date: 20230722
  Serious: Yes (Other)
  Sender: FDA-Public Use
  Company Number: US-BAUSCH-BL-2023-008483

PATIENT
  Age: 65 Year
  Sex: Male
  Weight: 103.51 kg

DRUGS (9)
  1. XIFAXAN [Suspect]
     Active Substance: RIFAXIMIN
     Indication: Cirrhosis alcoholic
     Route: 048
     Dates: start: 202201
  2. LIDODERM [Concomitant]
     Active Substance: LIDOCAINE
     Indication: Product used for unknown indication
     Dosage: APPLY 1 PATCH TO AFFECTED AREA EVERY 24 HOURS FOR 10 DAYS
  3. NAPROSYN [Concomitant]
     Active Substance: NAPROXEN
     Indication: Product used for unknown indication
     Dosage: TAKE 1 TABLET  BY MOUTH 2 TIMES DAILY WITH MEALS FOR 10 DAYS
     Route: 048
  4. MOTRIN [Concomitant]
     Active Substance: IBUPROFEN
     Indication: Pain
     Dosage: TAKE 1 TABLET EVERY 6 HOURS AS NEEDED
     Route: 048
  5. ALDACTONE [Concomitant]
     Active Substance: SPIRONOLACTONE
     Indication: Product used for unknown indication
     Dosage: TAKE 1 TABLET BY MOUTH DAILY AS NEEDED
     Route: 048
  6. MORNIFLUMATE [Concomitant]
     Active Substance: MORNIFLUMATE
     Indication: Product used for unknown indication
     Dosage: TAKE 0.4 MG BY MOUTH DAILY
     Route: 048
  7. ECOTRIN [Concomitant]
     Active Substance: ASPIRIN
     Indication: Product used for unknown indication
     Dosage: TAKE 81 MG BY MOUTH DAILY
     Route: 048
  8. PRILOSEC [Concomitant]
     Active Substance: OMEPRAZOLE MAGNESIUM
     Indication: Product used for unknown indication
     Dosage: DELAYED RELEASE (EC), TAKE 20 MG BY MOUTH DAILY
     Route: 048
  9. INDOCIN [Concomitant]
     Active Substance: INDOMETHACIN
     Indication: Product used for unknown indication
     Dosage: TAKE 50 MG BY MOUTH 3 TIMES DAILY AS NEEDED
     Route: 048

REACTIONS (7)
  - Thrombocytopenia [Recovering/Resolving]
  - Haemorrhagic diathesis [Recovering/Resolving]
  - Memory impairment [Recovering/Resolving]
  - Anaemia [Recovering/Resolving]
  - Insomnia [Recovering/Resolving]
  - Constipation [Recovering/Resolving]
  - Abdominal pain upper [Recovering/Resolving]

NARRATIVE: CASE EVENT DATE: 20230401
